FAERS Safety Report 12824219 (Version 6)
Quarter: 2017Q1

REPORT INFORMATION
  Report Type: Spontaneous
  Country: FR (occurrence: FR)
  Receive Date: 20161006
  Receipt Date: 20170301
  Transmission Date: 20170428
  Serious: Yes (Hospitalization, Disabling, Other)
  Sender: FDA-Public Use
  Company Number: FR-PFIZER INC-2016455147

PATIENT
  Age: 39 Year
  Sex: Female
  Weight: 70 kg

DRUGS (17)
  1. OXOMEMAZINE [Concomitant]
     Active Substance: OXOMEMAZINE
     Dosage: 1 DF, 4X/DAY
     Dates: start: 20131017
  2. KETEK /00984601/ [Concomitant]
     Active Substance: CLARITHROMYCIN
     Dosage: 800 MG (2 TABLETS IN THE EVENING), 1X/DAY
     Dates: start: 20131017
  3. MEDROL [Suspect]
     Active Substance: METHYLPREDNISOLONE
     Indication: BRONCHITIS
     Dosage: 32MG IN THE MORNING AND 16 MG AT NOON
     Dates: start: 20131014
  4. SOLU-MEDROL [Suspect]
     Active Substance: METHYLPREDNISOLONE SODIUM SUCCINATE
     Indication: BRONCHOPNEUMOPATHY
     Dosage: 1 DF (40MG/2ML), 1X/DAY
     Route: 030
     Dates: start: 20131019, end: 20161022
  5. HELICOBACTER TEST INFAI [Concomitant]
     Indication: GASTROOESOPHAGEAL REFLUX DISEASE
     Dosage: WITH A DIAGNOTIC TEST KIT
     Dates: start: 20131009
  6. GAVISCON /02804301/ [Concomitant]
     Indication: GASTROOESOPHAGEAL REFLUX DISEASE
     Dosage: 1 SACHET IN THE MORNING, AT NOON AND THE EVENING AFTER MEALS FOR 8 DAYS
     Dates: start: 20131009
  7. LEVOTHYROX [Concomitant]
     Active Substance: LEVOTHYROXINE
     Dosage: 0.5 DF, 1X/DAY
     Dates: start: 20131009
  8. PHYSIOLOGIC SERUM [Concomitant]
     Active Substance: UNSPECIFIED INGREDIENT
     Dosage: 1 DF, 4X/DAY
     Dates: start: 20131014
  9. ROCEPHINE [Concomitant]
     Active Substance: CEFTRIAXONE SODIUM
     Indication: BRONCHOPNEUMOPATHY
     Dosage: UNK
     Dates: start: 20131019
  10. SYMBICORT [Concomitant]
     Active Substance: BUDESONIDE\FORMOTEROL FUMARATE DIHYDRATE
     Dosage: 1 DF IN THE MORNING AND IN THE EVENING, 2X/DAY
     Dates: start: 20131017
  11. MYCOSTER /00619301/ [Concomitant]
     Active Substance: CICLOPIROX\CICLOPIROX OLAMINE
     Indication: FUNGAL INFECTION
     Dosage: UNK
     Dates: start: 20131017
  12. MONAZOL [Concomitant]
     Active Substance: SERTACONAZOLE NITRATE
     Indication: FUNGAL INFECTION
     Dosage: UNK
     Dates: start: 20131017
  13. FLUCONAZOLE. [Concomitant]
     Active Substance: FLUCONAZOLE
     Indication: FUNGAL INFECTION
     Dosage: UNK
     Dates: start: 20131017
  14. DOLIPRANE [Concomitant]
     Active Substance: ACETAMINOPHEN
     Dosage: 1 G, 4X/DAY
     Dates: start: 20131014
  15. INEXIUM /01479302/ [Concomitant]
     Active Substance: ESOMEPRAZOLE MAGNESIUM
     Indication: GASTROOESOPHAGEAL REFLUX DISEASE
     Dosage: ONE TABLET IN THE EVENING FOR ONE MONTH
     Dates: start: 20131009
  16. ORELOX [Concomitant]
     Active Substance: CEFPODOXIME
     Dosage: 200 MG (2 TABLETS IN THE MORNING AND IN THE EVENING), 2X/DAY
     Dates: start: 20131014
  17. BECLOSPIN [Concomitant]
     Active Substance: BECLOMETHASONE DIPROPIONATE
     Dosage: 1 DF (800UG/2ML), 2X/DAY
     Route: 055
     Dates: start: 20131014

REACTIONS (2)
  - Drug ineffective [Unknown]
  - Osteonecrosis [Recovered/Resolved]

NARRATIVE: CASE EVENT DATE: 20131019
